FAERS Safety Report 24203272 (Version 1)
Quarter: 2024Q3

REPORT INFORMATION
  Report Type: Spontaneous
  Country: AU (occurrence: AU)
  Receive Date: 20240813
  Receipt Date: 20240813
  Transmission Date: 20241017
  Serious: Yes (Other)
  Sender: PANACEA BIOTEC
  Company Number: AU-PBT-009629

PATIENT

DRUGS (2)
  1. PRASUGREL [Suspect]
     Active Substance: PRASUGREL
     Indication: Antiplatelet therapy
     Route: 065
  2. CLOPIDOGREL [Suspect]
     Active Substance: CLOPIDOGREL BISULFATE
     Indication: Antiplatelet therapy
     Route: 065

REACTIONS (3)
  - Vascular stent thrombosis [Unknown]
  - Cerebral artery occlusion [Unknown]
  - Drug resistance [Unknown]
